FAERS Safety Report 10655277 (Version 2)
Quarter: 2014Q4

REPORT INFORMATION
  Report Type: Spontaneous
  Country: GB (occurrence: GB)
  Receive Date: 20141216
  Receipt Date: 20141231
  Transmission Date: 20150529
  Serious: Yes (Other)
  Sender: FDA-Public Use
  Company Number: GB-PFIZER INC-2014339748

PATIENT
  Age: 70 Year
  Sex: Female
  Weight: 89 kg

DRUGS (9)
  1. DOXYCYCLINE MONOHYDRATE [Suspect]
     Active Substance: DOXYCYCLINE
     Indication: LOWER RESPIRATORY TRACT INFECTION
     Dosage: UNK
     Route: 048
  2. PREDNISOLONE. [Concomitant]
     Active Substance: PREDNISOLONE
     Dosage: 10 MG, 1X/DAY
  3. DILTIAZEM [Concomitant]
     Active Substance: DILTIAZEM
     Dosage: 180 MG, 1X/DAY
  4. LOSARTAN [Concomitant]
     Active Substance: LOSARTAN
     Dosage: 50 MG, 1X/DAY
  5. SIMVASTATIN. [Concomitant]
     Active Substance: SIMVASTATIN
     Dosage: 20 MG, 1X/DAY, AT NIGHT
  6. SERETIDE [Concomitant]
     Active Substance: FLUTICASONE FUROATE\SALMETEROL XINAFOATE
     Dosage: 1 DF, 2X/DAY
     Route: 055
  7. VENTOLIN [Concomitant]
     Active Substance: ALBUTEROL SULFATE
     Dosage: UNK
     Route: 055
  8. MONTELUKAST [Concomitant]
     Active Substance: MONTELUKAST SODIUM
     Dosage: 10 MG, 1X/DAY, AT NIGHT
  9. DABIGATRAN [Concomitant]
     Active Substance: DABIGATRAN
     Dosage: 150 MG, 2X/DAY
     Dates: start: 2012

REACTIONS (7)
  - Secretion discharge [Unknown]
  - Chest discomfort [Recovered/Resolved]
  - Nausea [Recovered/Resolved]
  - Chest pain [Recovered/Resolved]
  - Dyspnoea [Unknown]
  - Malaise [Recovered/Resolved]
  - Gastrointestinal stoma output increased [Recovered/Resolved]

NARRATIVE: CASE EVENT DATE: 201411
